FAERS Safety Report 8094263-1 (Version None)
Quarter: 2012Q1

REPORT INFORMATION
  Report Type: 
  Country: None (occurrence: None)
  Receive Date: 20120131
  Receipt Date: 20120125
  Transmission Date: 20120608
  Serious: Yes (Death, Other)
  Sender: FDA-Public Use
  Company Number: DE-CELGENEUS-062-C5013-11051036

PATIENT
  Age: 66 Year
  Sex: Male

DRUGS (6)
  1. ACETYLSALICYLIC ACID SRT [Concomitant]
     Indication: THROMBOSIS PROPHYLAXIS
     Dosage: 100 MILLIGRAM
     Route: 048
  2. LENALIDOMIDE [Suspect]
     Dosage: 5 MILLIGRAM
     Route: 048
     Dates: end: 20110209
  3. DEXAMETHASONE [Suspect]
     Indication: MULTIPLE MYELOMA
     Dosage: 40 MILLIGRAM
     Route: 065
     Dates: start: 20100512
  4. ESIDRIX [Concomitant]
     Indication: HYPERTENSION
     Dosage: 12.5 MILLIGRAM
     Route: 048
  5. CHLOROTHIAZIDE [Concomitant]
     Indication: HYPERTENSION
     Dosage: 500 MILLIGRAM
     Route: 048
  6. LENALIDOMIDE [Suspect]
     Indication: MULTIPLE MYELOMA
     Dosage: 10 MILLIGRAM
     Route: 048
     Dates: start: 20100512

REACTIONS (1)
  - PANCREATIC CARCINOMA METASTATIC [None]
